FAERS Safety Report 7067328-0 (Version None)
Quarter: 2010Q4

REPORT INFORMATION
  Report Type: 
  Country: None (occurrence: None)
  Receive Date: 20101028
  Receipt Date: 20101016
  Transmission Date: 20110411
  Serious: No
  Sender: FDA-Public Use
  Company Number: US-BAYER-201037802NA

PATIENT
  Age: 59 Year
  Sex: Female

DRUGS (3)
  1. CLIMARA PRO [Suspect]
     Indication: AUTONOMIC NERVOUS SYSTEM IMBALANCE
     Dosage: 0.045MG/0.015MG/DAY
     Route: 062
     Dates: start: 20050101, end: 20101014
  2. CLIMARA PRO [Suspect]
     Dosage: 0.045MG/0.015MG/DAY
     Route: 062
     Dates: start: 20101014, end: 20101015
  3. CLIMARA PRO [Suspect]
     Dosage: 0.045MG/0.015MG/DAY
     Route: 062
     Dates: start: 20101015

REACTIONS (4)
  - BLOOD PRESSURE DECREASED [None]
  - DIZZINESS [None]
  - FEELING ABNORMAL [None]
  - HYPERSOMNIA [None]
